FAERS Safety Report 21145295 (Version 1)
Quarter: 2022Q3

REPORT INFORMATION
  Report Type: Spontaneous
  Country: CN (occurrence: CN)
  Receive Date: 20220729
  Receipt Date: 20220729
  Transmission Date: 20221026
  Serious: Yes (Other)
  Sender: FDA-Public Use
  Company Number: CN-009507513-2207CHN007153

PATIENT
  Age: 84 Year
  Sex: Male
  Weight: 61 kg

DRUGS (2)
  1. CILASTATIN SODIUM\IMIPENEM [Suspect]
     Active Substance: CILASTATIN SODIUM\IMIPENEM
     Indication: Pneumonia
     Dosage: 1G, TID
     Route: 041
     Dates: start: 20220707, end: 20220710
  2. SODIUM CHLORIDE [Concomitant]
     Active Substance: SODIUM CHLORIDE
     Indication: Medication dilution
     Dosage: 100ML, TID
     Route: 041
     Dates: start: 20220707, end: 20220710

REACTIONS (6)
  - Dysphoria [Unknown]
  - Abnormal behaviour [Unknown]
  - Disorganised speech [Unknown]
  - Cerebral atrophy [Unknown]
  - Cerebral arteriosclerosis [Unknown]
  - Soft tissue swelling [Unknown]

NARRATIVE: CASE EVENT DATE: 20220710
